FAERS Safety Report 22146860 (Version 4)
Quarter: 2025Q4

REPORT INFORMATION
  Report Type: Spontaneous
  Country: EU (occurrence: EU)
  Receive Date: 20230328
  Receipt Date: 20251002
  Transmission Date: 20260117
  Serious: Yes (Hospitalization, Other)
  Sender: MYLAN
  Company Number: EU-EMA-20150318-AUTODUP-411338

PATIENT
  Age: 56 Year
  Sex: Female

DRUGS (32)
  1. TACROLIMUS [Suspect]
     Active Substance: TACROLIMUS
     Indication: Transplant
     Dosage: TARGET TROUGH CONCENTRATION 10-15 NG/ML
  2. TACROLIMUS [Suspect]
     Active Substance: TACROLIMUS
     Indication: Immunosuppressant drug therapy
     Dosage: TARGET TROUGH CONCENTRATION 10-15 NG/ML
     Route: 065
  3. TACROLIMUS [Suspect]
     Active Substance: TACROLIMUS
     Dosage: TARGET TROUGH CONCENTRATION 10-15 NG/ML
     Route: 065
  4. TACROLIMUS [Suspect]
     Active Substance: TACROLIMUS
     Dosage: TARGET TROUGH CONCENTRATION 10-15 NG/ML
  5. MYCOPHENOLATE MOFETIL [Suspect]
     Active Substance: MYCOPHENOLATE MOFETIL
     Indication: Immunosuppressant drug therapy
     Dosage: 2 GRAM, QD
  6. MYCOPHENOLATE MOFETIL [Suspect]
     Active Substance: MYCOPHENOLATE MOFETIL
     Indication: Transplant
     Dosage: 2 GRAM, QD
     Route: 065
  7. MYCOPHENOLATE MOFETIL [Suspect]
     Active Substance: MYCOPHENOLATE MOFETIL
     Dosage: 2 GRAM, QD
     Route: 065
  8. MYCOPHENOLATE MOFETIL [Suspect]
     Active Substance: MYCOPHENOLATE MOFETIL
     Dosage: 2 GRAM, QD
  9. METHYLPREDNISOLONE [Suspect]
     Active Substance: METHYLPREDNISOLONE
     Indication: Immunosuppressant drug therapy
     Dosage: 1 DOSAGE FORM, QD (20-40 MG/DAY)
  10. METHYLPREDNISOLONE [Suspect]
     Active Substance: METHYLPREDNISOLONE
     Indication: Transplant
     Dosage: 1 DOSAGE FORM, QD (20-40 MG/DAY)
     Route: 065
  11. METHYLPREDNISOLONE [Suspect]
     Active Substance: METHYLPREDNISOLONE
     Dosage: 1 DOSAGE FORM, QD (20-40 MG/DAY)
     Route: 065
  12. METHYLPREDNISOLONE [Suspect]
     Active Substance: METHYLPREDNISOLONE
     Dosage: 1 DOSAGE FORM, QD (20-40 MG/DAY)
  13. PREDNISONE [Suspect]
     Active Substance: PREDNISONE
     Indication: Immunosuppressant drug therapy
     Dosage: 40 MILLIGRAM, QD, 40 MG, QD, 20 TO 40 MG/DAY
  14. PREDNISONE [Suspect]
     Active Substance: PREDNISONE
     Indication: Transplant
     Dosage: 40 MILLIGRAM, QD, 40 MG, QD, 20 TO 40 MG/DAY
     Route: 065
  15. PREDNISONE [Suspect]
     Active Substance: PREDNISONE
     Dosage: 40 MILLIGRAM, QD, 40 MG, QD, 20 TO 40 MG/DAY
     Route: 065
  16. PREDNISONE [Suspect]
     Active Substance: PREDNISONE
     Dosage: 40 MILLIGRAM, QD, 40 MG, QD, 20 TO 40 MG/DAY
  17. GANCICLOVIR [Suspect]
     Active Substance: GANCICLOVIR
     Indication: Immunosuppressant drug therapy
     Dosage: UNK
  18. GANCICLOVIR [Suspect]
     Active Substance: GANCICLOVIR
     Dosage: UNK
     Route: 065
  19. GANCICLOVIR [Suspect]
     Active Substance: GANCICLOVIR
     Dosage: UNK
     Route: 065
  20. GANCICLOVIR [Suspect]
     Active Substance: GANCICLOVIR
     Dosage: UNK
  21. SIMULECT [Suspect]
     Active Substance: BASILIXIMAB
     Indication: Immunosuppressant drug therapy
     Dosage: UNK
  22. SIMULECT [Suspect]
     Active Substance: BASILIXIMAB
     Indication: Transplant
     Dosage: UNK
     Route: 065
  23. SIMULECT [Suspect]
     Active Substance: BASILIXIMAB
     Dosage: UNK
     Route: 065
  24. SIMULECT [Suspect]
     Active Substance: BASILIXIMAB
     Dosage: UNK
  25. SULFAMETHOXAZOLE\TRIMETHOPRIM [Concomitant]
     Active Substance: SULFAMETHOXAZOLE\TRIMETHOPRIM
     Indication: Prophylaxis
     Dosage: UNK
  26. SULFAMETHOXAZOLE\TRIMETHOPRIM [Concomitant]
     Active Substance: SULFAMETHOXAZOLE\TRIMETHOPRIM
     Indication: Infection prophylaxis
     Dosage: UNK
     Route: 065
  27. SULFAMETHOXAZOLE\TRIMETHOPRIM [Concomitant]
     Active Substance: SULFAMETHOXAZOLE\TRIMETHOPRIM
     Dosage: UNK
     Route: 065
  28. SULFAMETHOXAZOLE\TRIMETHOPRIM [Concomitant]
     Active Substance: SULFAMETHOXAZOLE\TRIMETHOPRIM
     Dosage: UNK
  29. COTRIMOXAZOLE [Concomitant]
     Active Substance: SULFAMETHOXAZOLE\TRIMETHOPRIM
     Indication: Antibiotic prophylaxis
     Dosage: UNK
  30. COTRIMOXAZOLE [Concomitant]
     Active Substance: SULFAMETHOXAZOLE\TRIMETHOPRIM
     Dosage: UNK
     Route: 065
  31. COTRIMOXAZOLE [Concomitant]
     Active Substance: SULFAMETHOXAZOLE\TRIMETHOPRIM
     Dosage: UNK
     Route: 065
  32. COTRIMOXAZOLE [Concomitant]
     Active Substance: SULFAMETHOXAZOLE\TRIMETHOPRIM
     Dosage: UNK

REACTIONS (9)
  - Transplant rejection [Recovered/Resolved]
  - Malaise [Recovered/Resolved]
  - Vomiting [Recovered/Resolved]
  - Cytomegalovirus infection [Recovered/Resolved]
  - Tonsillitis [Recovered/Resolved]
  - Diarrhoea [Recovered/Resolved]
  - Pyrexia [Recovered/Resolved]
  - Herpes zoster [Recovered/Resolved]
  - Product use in unapproved indication [Unknown]
